FAERS Safety Report 17417303 (Version 1)
Quarter: 2020Q1

REPORT INFORMATION
  Report Type: Spontaneous
  Country: US (occurrence: US)
  Receive Date: 20200214
  Receipt Date: 20200214
  Transmission Date: 20200409
  Serious: No
  Sender: FDA-Public Use
  Company Number: US-LEO PHARMA-327865

PATIENT
  Age: 67 Year
  Sex: Female

DRUGS (1)
  1. PICATO [Suspect]
     Active Substance: INGENOL MEBUTATE
     Indication: ACTINIC KERATOSIS
     Dosage: APPLIED TO THE FACE FOR 3 ROUNDS OF TREATMENT OF AK OVER JANUARY 2019 THROUGH 2 WEEKS AGO.
     Route: 061
     Dates: start: 201911

REACTIONS (3)
  - Application site erythema [Not Recovered/Not Resolved]
  - Capillary fragility [Recovering/Resolving]
  - Application site vesicles [Not Recovered/Not Resolved]
